FAERS Safety Report 22356344 (Version 2)
Quarter: 2023Q2

REPORT INFORMATION
  Report Type: Report from Study
  Country: US (occurrence: US)
  Receive Date: 20230523
  Receipt Date: 20230526
  Transmission Date: 20230721
  Serious: Yes (Hospitalization, Other)
  Sender: FDA-Public Use
  Company Number: US-TAKEDA-2023TUS050276

PATIENT
  Age: 46 Year
  Sex: Female

DRUGS (11)
  1. TEDUGLUTIDE [Suspect]
     Active Substance: TEDUGLUTIDE
     Indication: Short-bowel syndrome
     Dosage: 2.95 MILLIGRAM, QD
     Route: 042
     Dates: start: 20190423, end: 20200630
  2. TEDUGLUTIDE [Suspect]
     Active Substance: TEDUGLUTIDE
     Indication: Short-bowel syndrome
     Dosage: 2.95 MILLIGRAM, QD
     Route: 042
     Dates: start: 20190423, end: 20200630
  3. TEDUGLUTIDE [Suspect]
     Active Substance: TEDUGLUTIDE
     Indication: Short-bowel syndrome
     Dosage: 2.95 MILLIGRAM, QD
     Route: 042
     Dates: start: 20190423, end: 20200630
  4. TEDUGLUTIDE [Suspect]
     Active Substance: TEDUGLUTIDE
     Indication: Short-bowel syndrome
     Dosage: 2.95 MILLIGRAM, QD
     Route: 042
     Dates: start: 20190423, end: 20200630
  5. TEDUGLUTIDE [Suspect]
     Active Substance: TEDUGLUTIDE
     Dosage: 2.95 MILLIGRAM, 4/WEEK
     Route: 042
     Dates: start: 20200707
  6. TEDUGLUTIDE [Suspect]
     Active Substance: TEDUGLUTIDE
     Dosage: 2.95 MILLIGRAM, 4/WEEK
     Route: 042
     Dates: start: 20200707
  7. TEDUGLUTIDE [Suspect]
     Active Substance: TEDUGLUTIDE
     Dosage: 2.95 MILLIGRAM, 4/WEEK
     Route: 042
     Dates: start: 20200707
  8. TEDUGLUTIDE [Suspect]
     Active Substance: TEDUGLUTIDE
     Dosage: 2.95 MILLIGRAM, 4/WEEK
     Route: 042
     Dates: start: 20200707
  9. ZOLOFT [Concomitant]
     Active Substance: SERTRALINE HYDROCHLORIDE
     Indication: Depression
     Dosage: 50 MILLIGRAM, QD
     Route: 048
     Dates: start: 20140918
  10. ZANTAC [Concomitant]
     Active Substance: RANITIDINE HYDROCHLORIDE
     Indication: Peptic ulcer
     Dosage: 150 MILLIGRAM, QD
     Route: 048
     Dates: start: 20180328, end: 20221123
  11. METROCREAM [Concomitant]
     Active Substance: METRONIDAZOLE
     Indication: Rosacea
     Dosage: UNK UNK, BID
     Route: 061
     Dates: start: 20210828

REACTIONS (3)
  - Acute kidney injury [Recovered/Resolved]
  - Dehydration [Recovered/Resolved]
  - Hyperkalaemia [Recovered/Resolved]

NARRATIVE: CASE EVENT DATE: 20230401
